FAERS Safety Report 12178373 (Version 1)
Quarter: 2016Q1

REPORT INFORMATION
  Report Type: Spontaneous
  Country: US (occurrence: US)
  Receive Date: 20160314
  Receipt Date: 20160314
  Transmission Date: 20160526
  Serious: No
  Sender: FDA-Public Use
  Company Number: US-SA-2015SA214048

PATIENT
  Age: 75 Year
  Sex: Male

DRUGS (6)
  1. TOUJEO [Suspect]
     Active Substance: INSULIN GLARGINE
     Indication: TYPE 2 DIABETES MELLITUS
     Dosage: DOSE:23 UNIT(S)
     Route: 065
     Dates: start: 20150701
  2. SOLOSTAR [Concomitant]
     Active Substance: DEVICE
     Indication: TYPE 2 DIABETES MELLITUS
     Dates: start: 201508
  3. LANTUS [Concomitant]
     Active Substance: INSULIN GLARGINE
     Dates: end: 2015
  4. LEVEMIR [Concomitant]
     Active Substance: INSULIN DETEMIR
     Dosage: DOSE:30 UNIT(S)
     Dates: end: 201508
  5. METFORMIN [Concomitant]
     Active Substance: METFORMIN HYDROCHLORIDE
  6. NOVOLOG [Concomitant]
     Active Substance: INSULIN ASPART

REACTIONS (2)
  - Blood glucose abnormal [Not Recovered/Not Resolved]
  - Glycosylated haemoglobin increased [Not Recovered/Not Resolved]

NARRATIVE: CASE EVENT DATE: 20151209
